FAERS Safety Report 23267450 (Version 1)
Quarter: 2023Q4

REPORT INFORMATION
  Report Type: Spontaneous
  Country: NL (occurrence: NL)
  Receive Date: 20231206
  Receipt Date: 20231206
  Transmission Date: 20240110
  Serious: Yes (Other)
  Sender: FDA-Public Use
  Company Number: NL-ALNYLAM PHARMACEUTICALS, INC.-ALN-2023-006372

PATIENT

DRUGS (2)
  1. OXLUMO [Suspect]
     Active Substance: LUMASIRAN
     Indication: Primary hyperoxaluria
     Dosage: 6 MILLIGRAM/KILOGRAM ( FOUR MONTHLY LOADING DOSES FOLLOWED BY QUARTERLY)
     Route: 058
  2. NEDOSIRAN SODIUM [Concomitant]
     Active Substance: NEDOSIRAN SODIUM
     Indication: Product used for unknown indication
     Dosage: 3.5 MILLIGRAM/KILOGRAM, MONTHLY
     Route: 058

REACTIONS (1)
  - Renal transplant [Unknown]
